FAERS Safety Report 19224754 (Version 2)
Quarter: 2021Q2

REPORT INFORMATION
  Report Type: Spontaneous
  Country: US (occurrence: US)
  Receive Date: 20210506
  Receipt Date: 20210614
  Transmission Date: 20210717
  Serious: No
  Sender: FDA-Public Use
  Company Number: US-VERTEX PHARMACEUTICALS-2021-007073

PATIENT
  Age: 24 Year
  Sex: Female

DRUGS (13)
  1. FASENRA [Concomitant]
     Active Substance: BENRALIZUMAB
  2. CAYSTON [Concomitant]
     Active Substance: AZTREONAM
  3. HUMALOG [Concomitant]
     Active Substance: INSULIN LISPRO
  4. TRIKAFTA [Suspect]
     Active Substance: ELEXACAFTOR\IVACAFTOR\TEZACAFTOR
     Indication: CYSTIC FIBROSIS
     Dosage: 2 TAB (100 MG ELEXACAFTOR/ 50 MG TEZACAFTOR/ 75 MG IVACAFTOR) AM, 1 TAB (IVACAFTOR 150 MG) PM; BID
     Route: 048
     Dates: start: 20191106
  5. PULMOZYME [Concomitant]
     Active Substance: DORNASE ALFA
  6. ACETYLCYSTEINE. [Concomitant]
     Active Substance: ACETYLCYSTEINE
  7. AZITHROMYCIN ANHYDROUS. [Concomitant]
     Active Substance: AZITHROMYCIN ANHYDROUS
  8. SYMBICORT [Concomitant]
     Active Substance: BUDESONIDE\FORMOTEROL FUMARATE DIHYDRATE
  9. CREON [Concomitant]
     Active Substance: PANCRELIPASE AMYLASE\PANCRELIPASE LIPASE\PANCRELIPASE PROTEASE
  10. FAMOTIDINE. [Concomitant]
     Active Substance: FAMOTIDINE
  11. FLUOXETINE [Concomitant]
     Active Substance: FLUOXETINE HYDROCHLORIDE
  12. HYPERTONIC SALINE SOLUTION [Concomitant]
     Active Substance: SODIUM CHLORIDE
  13. ALBUTEROL [SALBUTAMOL] [Concomitant]
     Active Substance: ALBUTEROL

REACTIONS (3)
  - Breast pain [Recovered/Resolved]
  - Breast tenderness [Recovered/Resolved]
  - Acne cystic [Recovering/Resolving]

NARRATIVE: CASE EVENT DATE: 201911
